FAERS Safety Report 8579546-0 (Version None)
Quarter: 2012Q3

REPORT INFORMATION
  Report Type: 
  Country: None (occurrence: None)
  Receive Date: 20120808
  Receipt Date: 20120802
  Transmission Date: 20120928
  Serious: Yes (Death, Other)
  Sender: FDA-Public Use
  Company Number: IT-ROXANE LABORATORIES, INC.-2012-RO-01631RO

PATIENT
  Age: 64 Year
  Sex: Male

DRUGS (5)
  1. DEXAMETHASONE [Suspect]
     Dosage: 40 MG
  2. CYCLOPHOSPHAMIDE [Suspect]
     Indication: LEUKAEMIA PLASMACYTIC
     Dosage: 1 G
     Route: 042
  3. LENALIDOMIDE [Suspect]
     Indication: LEUKAEMIA PLASMACYTIC
     Dosage: 25 MG
  4. DEXAMETHASONE [Suspect]
     Indication: LEUKAEMIA PLASMACYTIC
     Dosage: 40 MG
  5. BORTEZOMIB [Suspect]
     Indication: LEUKAEMIA PLASMACYTIC
     Route: 042

REACTIONS (4)
  - DISEASE PROGRESSION [None]
  - LEUKAEMIA PLASMACYTIC [None]
  - NEUTROPENIA [None]
  - PNEUMONIA [None]
